FAERS Safety Report 7892753-5 (Version None)
Quarter: 2011Q4

REPORT INFORMATION
  Report Type: 
  Country: None (occurrence: None)
  Receive Date: 20111104
  Receipt Date: 20111102
  Transmission Date: 20120403
  Serious: Yes (Death)
  Sender: FDA-Public Use
  Company Number: FR-BRISTOL-MYERS SQUIBB COMPANY-16155921

PATIENT
  Age: 44 Year
  Sex: Male
  Weight: 107 kg

DRUGS (1)
  1. IPILIMUMAB [Suspect]
     Indication: MALIGNANT MELANOMA
     Dosage: 1DF:2 INF,1ST DOSE ON 24DEC10,2ND DOSE ON 14JAN11.
     Dates: start: 20101224

REACTIONS (1)
  - NEOPLASM MALIGNANT [None]
